FAERS Safety Report 23940478 (Version 1)
Quarter: 2024Q2

REPORT INFORMATION
  Report Type: Spontaneous
  Country: SE (occurrence: SE)
  Receive Date: 20240605
  Receipt Date: 20240605
  Transmission Date: 20240716
  Serious: Yes (Other)
  Sender: FDA-Public Use
  Company Number: None

PATIENT
  Age: 26 Year
  Sex: Female
  Weight: 60 kg

DRUGS (1)
  1. OXYCODONE [Suspect]
     Active Substance: OXYCODONE\OXYCODONE HYDROCHLORIDE
     Indication: Surgery
     Dosage: 1-4 IN CASE OF SEVERE PAIN, OXYCODONE TEVA
     Route: 048
     Dates: start: 20231209, end: 20231223

REACTIONS (3)
  - Muscle spasms [Recovered/Resolved]
  - Hallucination [Recovered/Resolved]
  - Respiratory depression [Recovered/Resolved]

NARRATIVE: CASE EVENT DATE: 20231223
